FAERS Safety Report 23182903 (Version 1)
Quarter: 2023Q4

REPORT INFORMATION
  Report Type: Spontaneous
  Country: US (occurrence: None)
  Receive Date: 20231114
  Receipt Date: 20231114
  Transmission Date: 20240110
  Serious: Yes (unspecified)
  Sender: FDA-Public Use
  Company Number: None

PATIENT
  Age: 5 Year
  Sex: Male

DRUGS (1)
  1. GUANFACINE [Suspect]
     Active Substance: GUANFACINE
     Indication: Oppositional defiant disorder
     Dosage: V0.5 MG DAILY ORAL?
     Route: 048
     Dates: start: 20231110, end: 20231113

REACTIONS (1)
  - Pruritus [None]

NARRATIVE: CASE EVENT DATE: 20231114
